FAERS Safety Report 18940355 (Version 1)
Quarter: 2021Q1

REPORT INFORMATION
  Report Type: Spontaneous
  Country: US (occurrence: US)
  Receive Date: 20210225
  Receipt Date: 20210225
  Transmission Date: 20210420
  Serious: Yes (Disabling)
  Sender: FDA-Public Use
  Company Number: None

PATIENT
  Age: 29 Year
  Sex: Female
  Weight: 56.7 kg

DRUGS (17)
  1. B2 [Concomitant]
  2. TREXIMET [Concomitant]
     Active Substance: NAPROXEN SODIUM\SUMATRIPTAN SUCCINATE
  3. EMGALITY [Suspect]
     Active Substance: GALCANEZUMAB-GNLM
     Indication: MIGRAINE
     Route: 030
     Dates: start: 20210207
  4. MAGNESIUM [Concomitant]
     Active Substance: MAGNESIUM
  5. FLUVOXAMINE [Concomitant]
     Active Substance: FLUVOXAMINE
  6. ADDERALL [Concomitant]
     Active Substance: AMPHETAMINE ASPARTATE\AMPHETAMINE SULFATE\DEXTROAMPHETAMINE SACCHARATE\DEXTROAMPHETAMINE SULFATE
  7. CINNAMON. [Concomitant]
     Active Substance: CINNAMON
  8. ALPHA LIPOIC ACID [Concomitant]
     Active Substance: .ALPHA.-LIPOIC ACID
  9. RASPBERRY KETONES [Concomitant]
     Active Substance: RASPBERRY KETONE
  10. TONALIN CLA [Concomitant]
  11. ARMOUR THYROID [Concomitant]
     Active Substance: THYROID, PORCINE
  12. TRAZODONE [Concomitant]
     Active Substance: TRAZODONE HYDROCHLORIDE
  13. GREEN TEA EXTRACT [Concomitant]
  14. LAMOTRIGINE. [Concomitant]
     Active Substance: LAMOTRIGINE
  15. TOPAMAX [Concomitant]
     Active Substance: TOPIRAMATE
  16. SKYLA [Concomitant]
     Active Substance: LEVONORGESTREL
  17. VALIUM [Concomitant]
     Active Substance: DIAZEPAM

REACTIONS (23)
  - Aphasia [None]
  - Arthralgia [None]
  - Major depression [None]
  - Dizziness [None]
  - Memory impairment [None]
  - Abdominal distension [None]
  - Decreased interest [None]
  - Hyperphagia [None]
  - Injection site pain [None]
  - Myalgia [None]
  - Joint swelling [None]
  - Disorientation [None]
  - Sleep disorder [None]
  - Paranoia [None]
  - Gait disturbance [None]
  - Bedridden [None]
  - Constipation [None]
  - Feeling abnormal [None]
  - Headache [None]
  - Musculoskeletal discomfort [None]
  - Nausea [None]
  - Flatulence [None]
  - Anxiety [None]

NARRATIVE: CASE EVENT DATE: 20210207
